FAERS Safety Report 4487671-9 (Version None)
Quarter: 2004Q4

REPORT INFORMATION
  Report Type: 
  Country: None (occurrence: None)
  Receive Date: 20041027
  Receipt Date: 20041027
  Transmission Date: 20050328
  Serious: Yes (Life-Threatening)
  Sender: FDA-Public Use
  Company Number: None

PATIENT
  Sex: Male
  Weight: 78.4723 kg

DRUGS (1)
  1. CLARAVIS [Suspect]
     Indication: ACNE
     Dosage: BID
     Dates: start: 20040728, end: 20041018

REACTIONS (5)
  - AGGRESSION [None]
  - DEPRESSION [None]
  - HALLUCINATION [None]
  - PSYCHOTIC DISORDER [None]
  - SUICIDAL IDEATION [None]
